FAERS Safety Report 17527351 (Version 1)
Quarter: 2020Q1

REPORT INFORMATION
  Report Type: Spontaneous
  Country: GB (occurrence: GB)
  Receive Date: 20200311
  Receipt Date: 20200311
  Transmission Date: 20200409
  Serious: Yes (Life-Threatening)
  Sender: FDA-Public Use
  Company Number: GB-JNJFOC-20200244688

PATIENT
  Age: 51 Year
  Sex: Female
  Weight: 108 kg

DRUGS (17)
  1. INVOKANA [Suspect]
     Active Substance: CANAGLIFLOZIN
     Indication: TYPE 2 DIABETES MELLITUS
     Route: 048
  2. LANSOPRAZOLE. [Concomitant]
     Active Substance: LANSOPRAZOLE
  3. OXYCODONE [Concomitant]
     Active Substance: OXYCODONE
  4. BUCCASTEM [Concomitant]
     Active Substance: PROCHLORPERAZINE MALEATE
  5. AMITRIPTYLINE [Concomitant]
     Active Substance: AMITRIPTYLINE
  6. SERTRALINE [Concomitant]
     Active Substance: SERTRALINE HYDROCHLORIDE
  7. GLICLAZIDE [Concomitant]
     Active Substance: GLICLAZIDE
  8. LIRAGLUTIDE [Concomitant]
     Active Substance: LIRAGLUTIDE
  9. PREGABALIN. [Concomitant]
     Active Substance: PREGABALIN
  10. NEFOPAM [Concomitant]
     Active Substance: NEFOPAM
  11. METFORMIN [Concomitant]
     Active Substance: METFORMIN HYDROCHLORIDE
  12. PARACETAMOL [Concomitant]
     Active Substance: ACETAMINOPHEN
  13. CLOTRIMAZOLE. [Concomitant]
     Active Substance: CLOTRIMAZOLE
  14. FORCEVAL                           /07405301/ [Concomitant]
     Active Substance: FOLIC ACID\IRON\MINERALS\VITAMINS
  15. SIMVASTATIN. [Concomitant]
     Active Substance: SIMVASTATIN
  16. DALTEPARIN [Concomitant]
     Active Substance: DALTEPARIN
  17. DOCUSATE [Concomitant]
     Active Substance: DOCUSATE

REACTIONS (1)
  - Euglycaemic diabetic ketoacidosis [Recovered/Resolved]
